FAERS Safety Report 5099156-X (Version None)
Quarter: 2006Q3

REPORT INFORMATION
  Report Type: 
  Country: None (occurrence: None)
  Receive Date: 20060731
  Receipt Date: 20050831
  Transmission Date: 20061208
  Serious: Yes (Hospitalization)
  Sender: FDA-Public Use
  Company Number: 217384

PATIENT
  Sex: Female

DRUGS (9)
  1. RITUXAN [Suspect]
     Indication: CHRONIC LYMPHOCYTIC LEUKAEMIA
     Dosage: 375 MG/M2, 1/WEEK, UNK
     Dates: start: 20050727
  2. COMPAZINE [Concomitant]
  3. BENADRYL [Concomitant]
  4. DEXAMETHASONE TAB [Concomitant]
  5. DEMEROL [Concomitant]
  6. ATROVENT [Concomitant]
  7. PULMICORT [Concomitant]
  8. ACTONEL [Concomitant]
  9. LASIX [Concomitant]

REACTIONS (1)
  - SERUM SICKNESS [None]
